FAERS Safety Report 6858801-6 (Version None)
Quarter: 2010Q3

REPORT INFORMATION
  Report Type: 
  Country: None (occurrence: None)
  Receive Date: 20100719
  Receipt Date: 20080216
  Transmission Date: 20110219
  Serious: Yes (Other)
  Sender: FDA-Public Use
  Company Number: US-PFIZER INC-2008015026

PATIENT
  Sex: Female
  Weight: 73.5 kg

DRUGS (6)
  1. CHANTIX [Suspect]
     Indication: SMOKING CESSATION THERAPY
     Dates: start: 20080201
  2. TEGRETOL [Concomitant]
  3. RISPERDAL [Concomitant]
  4. KLONOPIN [Concomitant]
  5. SEROQUEL [Concomitant]
  6. LITHIUM CARBONATE [Concomitant]

REACTIONS (5)
  - ABNORMAL DREAMS [None]
  - AGGRESSION [None]
  - NAUSEA [None]
  - SCREAMING [None]
  - SUICIDAL IDEATION [None]
